FAERS Safety Report 21719890 (Version 1)
Quarter: 2022Q4

REPORT INFORMATION
  Report Type: Report from Study
  Country: SE (occurrence: SE)
  Receive Date: 20221213
  Receipt Date: 20221213
  Transmission Date: 20230112
  Serious: Yes (Other)
  Sender: FDA-Public Use
  Company Number: SE-TAKEDA-2022TUS095251

PATIENT
  Sex: Male

DRUGS (9)
  1. TEDUGLUTIDE [Suspect]
     Active Substance: TEDUGLUTIDE
     Indication: Short-bowel syndrome
     Dosage: 2.800 MILLIGRAM, QD
     Route: 042
     Dates: start: 20200312
  2. TEDUGLUTIDE [Suspect]
     Active Substance: TEDUGLUTIDE
     Indication: Short-bowel syndrome
     Dosage: 2.800 MILLIGRAM, QD
     Route: 042
     Dates: start: 20200312
  3. TEDUGLUTIDE [Suspect]
     Active Substance: TEDUGLUTIDE
     Indication: Short-bowel syndrome
     Dosage: 2.800 MILLIGRAM, QD
     Route: 042
     Dates: start: 20200312
  4. TEDUGLUTIDE [Suspect]
     Active Substance: TEDUGLUTIDE
     Indication: Short-bowel syndrome
     Dosage: 2.800 MILLIGRAM, QD
     Route: 042
     Dates: start: 20200312
  5. SOLVEZINK [Concomitant]
     Indication: Zinc deficiency
     Dosage: 0.50 DOSAGE FORM, QD
     Route: 048
     Dates: start: 20210618
  6. BEVIPLEX FORTE [Concomitant]
     Indication: Crohn^s disease
     Dosage: 1 DOSAGE FORM, BID
     Route: 048
     Dates: start: 20200108
  7. BEVIPLEX FORTE [Concomitant]
     Indication: Short-bowel syndrome
  8. BUDESONIDE [Concomitant]
     Active Substance: BUDESONIDE
     Indication: Dysphagia
     Dosage: 1 MILLIGRAM, BID
     Route: 048
     Dates: start: 20220615, end: 20220728
  9. BUDESONIDE [Concomitant]
     Active Substance: BUDESONIDE
     Dosage: 1 MILLIGRAM, BID
     Route: 048
     Dates: start: 20211201, end: 20220112

REACTIONS (1)
  - Squamous cell carcinoma of skin [Not Recovered/Not Resolved]

NARRATIVE: CASE EVENT DATE: 20220101
